FAERS Safety Report 6162181-1 (Version None)
Quarter: 2009Q2

REPORT INFORMATION
  Report Type: 
  Country: None (occurrence: None)
  Receive Date: 20090421
  Receipt Date: 20071126
  Transmission Date: 20091009
  Serious: No
  Sender: FDA-Public Use
  Company Number: US-SOLVAY-00207035159

PATIENT
  Sex: Female

DRUGS (3)
  1. UNKNOWN PAIN MEDICATION [Concomitant]
     Indication: PAIN
     Dosage: DAILY DOSE:  UNKNOWN
     Route: 048
  2. ANDROGEL [Suspect]
     Indication: ACCIDENTAL EXPOSURE
     Dosage: DAILY DOSE: 5 GRAM(S)
     Route: 062
     Dates: start: 20070801
  3. KLONOPIN [Concomitant]
     Indication: ILL-DEFINED DISORDER
     Dosage: DAILY DOSE:  UNKNOWN
     Route: 048

REACTIONS (2)
  - EYE SWELLING [None]
  - LACRIMATION INCREASED [None]
